FAERS Safety Report 20376177 (Version 3)
Quarter: 2022Q1

REPORT INFORMATION
  Report Type: Spontaneous
  Country: FR (occurrence: FR)
  Receive Date: 20220125
  Receipt Date: 20220301
  Transmission Date: 20220423
  Serious: Yes (Other)
  Sender: FDA-Public Use
  Company Number: FR-JAZZ-2021-FR-022046

PATIENT

DRUGS (8)
  1. SUNOSI [Suspect]
     Active Substance: SOLRIAMFETOL
     Indication: Narcolepsy
     Dosage: 75 MILLIGRAM, QD
     Route: 048
     Dates: start: 20210323, end: 20210518
  2. SUNOSI [Suspect]
     Active Substance: SOLRIAMFETOL
     Dosage: 150 MILLIGRAM, QD
     Route: 048
     Dates: start: 20210518, end: 20210618
  3. SUNOSI [Suspect]
     Active Substance: SOLRIAMFETOL
     Dosage: 75 MG IN THE MORNING AND 75 MG AND AT NOON DURING THE SUMMER
     Route: 048
     Dates: start: 20210618, end: 20211101
  4. METHYLPHENIDATE HYDROCHLORIDE [Concomitant]
     Active Substance: METHYLPHENIDATE HYDROCHLORIDE
     Indication: Hypersomnia
     Dosage: 10 MILLIGRAM, QD
     Route: 048
     Dates: start: 202110
  5. LEVONORGESTREL [Concomitant]
     Active Substance: LEVONORGESTREL
     Indication: Contraception
     Dosage: 1 CP PER DAY
  6. ETHINYL ESTRADIOL [Concomitant]
     Active Substance: ETHINYL ESTRADIOL
     Indication: Product used for unknown indication
  7. METHYLPHENIDATE [Concomitant]
     Active Substance: METHYLPHENIDATE
     Indication: Hypersomnia
     Dosage: UNK
     Dates: start: 202110
  8. INOFER [FERROUS SUCCINATE;SUCCINIC ACID] [Concomitant]
     Indication: Iron deficiency
     Dosage: UNK
     Dates: start: 202110, end: 202111

REACTIONS (2)
  - Abortion spontaneous [Unknown]
  - Exposure during pregnancy [Unknown]

NARRATIVE: CASE EVENT DATE: 20210101
